FAERS Safety Report 8825521 (Version 2)
Quarter: 2013Q2

REPORT INFORMATION
  Report Type: Report from Study
  Country: US (occurrence: US)
  Receive Date: 20121004
  Receipt Date: 20130411
  Transmission Date: 20140414
  Serious: Yes (Other)
  Sender: FDA-Public Use
  Company Number: US-JNJFOC-20120912717

PATIENT
  Age: 76 Year
  Sex: Male
  Weight: 93.9 kg

DRUGS (10)
  1. XARELTO [Suspect]
     Indication: ATRIAL FIBRILLATION
     Route: 048
     Dates: start: 20120907
  2. METOPROLOL SUCCINATE [Suspect]
     Indication: HEART RATE
     Route: 048
  3. METOPROLOL SUCCINATE [Suspect]
     Indication: HEART RATE
     Route: 048
     Dates: start: 20120913, end: 201209
  4. METOPROLOL SUCCINATE [Suspect]
     Indication: BLOOD PRESSURE
     Route: 048
  5. METOPROLOL SUCCINATE [Suspect]
     Indication: BLOOD PRESSURE
     Route: 048
     Dates: start: 20120913, end: 201209
  6. LISINOPRIL WITH HCTZ [Concomitant]
     Indication: BLOOD PRESSURE
     Route: 048
  7. PRAVASTATIN [Concomitant]
     Indication: BLOOD CHOLESTEROL
     Route: 048
  8. TERAZOSIN [Concomitant]
     Indication: BLOOD PRESSURE
     Route: 048
  9. MULTIVITAMIN TABLET [Concomitant]
     Indication: MEDICAL DIET
     Route: 048
  10. INHALER NOS [Concomitant]
     Indication: CHRONIC OBSTRUCTIVE PULMONARY DISEASE
     Route: 055

REACTIONS (3)
  - Blood pressure increased [Not Recovered/Not Resolved]
  - Hyperhidrosis [Not Recovered/Not Resolved]
  - Feeling hot [Not Recovered/Not Resolved]
